FAERS Safety Report 23643073 (Version 1)
Quarter: 2024Q1

REPORT INFORMATION
  Report Type: Spontaneous
  Country: CA (occurrence: CA)
  Receive Date: 20240318
  Receipt Date: 20240318
  Transmission Date: 20240410
  Serious: Yes (Other)
  Sender: FDA-Public Use
  Company Number: CA-PFIZER INC-202400064578

PATIENT
  Age: 58 Year
  Sex: Female

DRUGS (31)
  1. RUXIENCE [Suspect]
     Active Substance: RITUXIMAB-PVVR
     Indication: Rheumatoid arthritis
     Dosage: 1000 MG
     Route: 042
  2. RUXIENCE [Suspect]
     Active Substance: RITUXIMAB-PVVR
     Dosage: 1000 MG
     Route: 042
  3. RUXIENCE [Suspect]
     Active Substance: RITUXIMAB-PVVR
     Dosage: 1000 MG
     Route: 042
  4. RUXIENCE [Suspect]
     Active Substance: RITUXIMAB-PVVR
     Dosage: 1000 MG
     Route: 065
  5. RUXIENCE [Suspect]
     Active Substance: RITUXIMAB-PVVR
     Dosage: 1000 MG
     Route: 042
  6. TOFACITINIB CITRATE [Suspect]
     Active Substance: TOFACITINIB CITRATE
     Route: 065
  7. ACRIVASTINE [Suspect]
     Active Substance: ACRIVASTINE
     Indication: Pruritus
     Dosage: 50 MG
     Route: 042
  8. CODEINE [Suspect]
     Active Substance: CODEINE
     Route: 065
  9. CYMBALTA [Suspect]
     Active Substance: DULOXETINE HYDROCHLORIDE
     Route: 065
  10. ETANERCEPT [Suspect]
     Active Substance: ETANERCEPT
     Dosage: UNK
     Route: 065
  11. FLUOXETINE HYDROCHLORIDE [Suspect]
     Active Substance: FLUOXETINE HYDROCHLORIDE
     Route: 065
  12. HUMIRA [Suspect]
     Active Substance: ADALIMUMAB
     Indication: Rheumatoid arthritis
     Dosage: 40 MG 1 EVERY 2 WEEKS
     Route: 058
  13. LYRICA [Suspect]
     Active Substance: PREGABALIN
     Route: 065
  14. MORPHINE [Suspect]
     Active Substance: MORPHINE
     Route: 065
  15. PENICILLIN G [Suspect]
     Active Substance: PENICILLIN G
     Route: 065
  16. PROZAC [Suspect]
     Active Substance: FLUOXETINE HYDROCHLORIDE
     Route: 065
  17. RISEDRONATE SODIUM [Suspect]
     Active Substance: RISEDRONATE SODIUM
     Dosage: 35 MG, WEEKLY
     Route: 048
  18. SERTRALINE HYDROCHLORIDE [Suspect]
     Active Substance: SERTRALINE HYDROCHLORIDE
     Route: 065
  19. ACETAMINOPHEN [Concomitant]
     Active Substance: ACETAMINOPHEN
     Dosage: UNK
     Route: 048
  20. ASPIRIN [Concomitant]
     Active Substance: ASPIRIN
     Dosage: 81 MG, 1X/DAY
     Route: 048
  21. DIPHENHYDRAMINE HYDROCHLORIDE [Concomitant]
     Active Substance: DIPHENHYDRAMINE HYDROCHLORIDE
     Dosage: UNK
     Route: 065
  22. MELOXICAM [Concomitant]
     Active Substance: MELOXICAM
     Route: 065
  23. METHOTREXATE [Concomitant]
     Active Substance: METHOTREXATE
     Route: 065
  24. METHYLPREDNISOLONE ACETATE [Concomitant]
     Active Substance: METHYLPREDNISOLONE ACETATE
     Dosage: UNK
     Route: 042
  25. MYRBETRIQ [Concomitant]
     Active Substance: MIRABEGRON
     Route: 065
  26. NAPROXEN [Concomitant]
     Active Substance: NAPROXEN
  27. NAPROXEN SODIUM [Concomitant]
     Active Substance: NAPROXEN\NAPROXEN SODIUM
     Route: 065
  28. PREDNISONE ACETATE [Concomitant]
     Active Substance: PREDNISONE ACETATE
     Route: 065
  29. REMICADE [Concomitant]
     Active Substance: INFLIXIMAB
     Route: 065
  30. VENTOLIN [Concomitant]
     Active Substance: ALBUTEROL SULFATE
     Route: 065
  31. VITAMIN D NOS [Concomitant]
     Active Substance: VITAMIN D NOS
     Dosage: 50000 IU, WEEKLY
     Route: 065

REACTIONS (23)
  - Abdominal pain [Not Recovered/Not Resolved]
  - Bone density abnormal [Not Recovered/Not Resolved]
  - COVID-19 [Not Recovered/Not Resolved]
  - Drug hypersensitivity [Not Recovered/Not Resolved]
  - Drug ineffective [Not Recovered/Not Resolved]
  - Drug intolerance [Not Recovered/Not Resolved]
  - Ectopic pregnancy [Not Recovered/Not Resolved]
  - Headache [Not Recovered/Not Resolved]
  - Hysterectomy [Not Recovered/Not Resolved]
  - Infection [Not Recovered/Not Resolved]
  - Influenza [Not Recovered/Not Resolved]
  - Maternal exposure during pregnancy [Not Recovered/Not Resolved]
  - Muscle twitching [Not Recovered/Not Resolved]
  - Nausea [Not Recovered/Not Resolved]
  - Pain [Not Recovered/Not Resolved]
  - Periarthritis [Not Recovered/Not Resolved]
  - Peripheral swelling [Not Recovered/Not Resolved]
  - Pruritus [Not Recovered/Not Resolved]
  - Restlessness [Not Recovered/Not Resolved]
  - Rheumatoid arthritis [Not Recovered/Not Resolved]
  - Salpingo-oophorectomy bilateral [Not Recovered/Not Resolved]
  - Synovitis [Not Recovered/Not Resolved]
  - Urinary tract infection bacterial [Not Recovered/Not Resolved]
